FAERS Safety Report 5308414-2 (Version None)
Quarter: 2007Q2

REPORT INFORMATION
  Report Type: 
  Country: None (occurrence: None)
  Receive Date: 20070420
  Receipt Date: 20070420
  Transmission Date: 20071010
  Serious: Yes (Disabling)
  Sender: FDA-Public Use
  Company Number: None

PATIENT
  Age: 79 Year
  Sex: Male
  Weight: 80 kg

DRUGS (10)
  1. RASAGALINE 0.5MG TEVA [Suspect]
     Indication: PARKINSON'S DISEASE
     Dosage: 0.5MG ONCE DAILY PO
     Route: 048
     Dates: start: 20061114, end: 20070411
  2. RASAGALINE 1MG TEVA [Suspect]
     Indication: PARKINSON'S DISEASE
     Dosage: 1MG ONCE DAILY PO
     Route: 048
     Dates: start: 20070411, end: 20070416
  3. ASPIRIN [Concomitant]
  4. CALCIUM/VIT D. [Concomitant]
  5. CARBIDOPA AND LEVODOPA [Concomitant]
  6. CITALOPRAM HYDROBROMIDE [Concomitant]
  7. CYANOCOBALAMIN [Concomitant]
  8. DONEPEZIL HCL [Concomitant]
  9. LISINOPRIL [Concomitant]
  10. MEMANTINE HCL [Concomitant]

REACTIONS (1)
  - BLOOD PRESSURE INCREASED [None]
